FAERS Safety Report 6253822-9 (Version None)
Quarter: 2009Q3

REPORT INFORMATION
  Report Type: 
  Country: None (occurrence: None)
  Receive Date: 20090702
  Receipt Date: 20090622
  Transmission Date: 20100115
  Serious: Yes (Other)
  Sender: FDA-Public Use
  Company Number: GB-RANBAXY-2007RR-05857

PATIENT
  Age: 68 Year
  Sex: Male
  Weight: 78 kg

DRUGS (10)
  1. AMIODARONE HCL [Suspect]
     Dosage: 200 MG, QD
     Route: 065
  2. ACIPIMOX [Suspect]
     Dosage: 250 MG, BID
     Route: 065
  3. ASPIRIN [Suspect]
     Dosage: 75 MG, QD
     Route: 065
  4. BISOPROLOL [Suspect]
     Dosage: 7.5 MG, QD
     Route: 065
  5. DIGOXIN [Suspect]
     Dosage: .125 MG, QD
     Route: 065
  6. EZETROL [Suspect]
     Dosage: 10 MG, QD
     Route: 065
  7. FUROSEMIDE [Suspect]
     Dosage: 80 MG, BID
  8. FUROSEMIDE [Suspect]
     Dosage: 120 MG, BID
  9. LANSOPRAZOLE [Suspect]
     Dosage: 30 MG, QD
     Route: 065
  10. PERINDOPRIL [Suspect]
     Dosage: 2 MG, QD
     Route: 065

REACTIONS (7)
  - ATRIAL FIBRILLATION [None]
  - DIZZINESS [None]
  - DYSPNOEA [None]
  - FATIGUE [None]
  - LEFT VENTRICULAR FAILURE [None]
  - OEDEMA [None]
  - PARAESTHESIA [None]
